FAERS Safety Report 5952730-8 (Version None)
Quarter: 2008Q4

REPORT INFORMATION
  Report Type: 
  Country: None (occurrence: None)
  Receive Date: 20081114
  Receipt Date: 20081104
  Transmission Date: 20090506
  Serious: Yes (Life-Threatening, Hospitalization, Other)
  Sender: FDA-Public Use
  Company Number: JP-JNJFOC-20081002466

PATIENT
  Sex: Female

DRUGS (20)
  1. REMICADE [Suspect]
     Dosage: TOTAL OF 3 INFJUSIONS
     Route: 042
  2. REMICADE [Suspect]
     Route: 042
  3. REMICADE [Suspect]
     Indication: RHEUMATOID ARTHRITIS
     Dosage: 2 INFUSIONS ON UNSPECIFIED DATES
     Route: 042
  4. RHEUMATREX [Suspect]
     Route: 048
  5. RHEUMATREX [Suspect]
     Route: 048
  6. RHEUMATREX [Suspect]
     Indication: RHEUMATOID ARTHRITIS
     Route: 048
  7. PREDNISOLONE [Concomitant]
     Indication: RHEUMATOID ARTHRITIS
     Route: 048
  8. RIDURA [Concomitant]
     Indication: RHEUMATOID ARTHRITIS
     Dosage: 2 TABS DAILY
     Route: 048
  9. PENFIL INSULIN [Concomitant]
     Indication: DIABETES MELLITUS
     Route: 058
  10. ISCOTIN [Concomitant]
  11. MARZULENE-S [Concomitant]
     Indication: GASTRITIS
     Route: 048
  12. SUCRALFATE [Concomitant]
     Indication: GASTRITIS
     Route: 048
  13. VASOLAN [Concomitant]
     Indication: SUPRAVENTRICULAR TACHYCARDIA
     Route: 048
  14. POTASSIUM L-ASPARTATE [Concomitant]
     Indication: HYPOKALAEMIA
     Route: 048
  15. ALFAROL [Concomitant]
     Indication: OSTEOPOROSIS
     Dosage: 0.75 RG
     Route: 048
  16. SELBEX [Concomitant]
     Indication: GASTRITIS
     Route: 048
  17. VOLTAREN [Concomitant]
     Indication: RHEUMATOID ARTHRITIS
     Route: 048
  18. VOGLIDASE [Concomitant]
     Indication: DIABETES MELLITUS
     Route: 048
  19. MEVAN [Concomitant]
     Indication: HYPERLIPIDAEMIA
     Route: 048
  20. FOLIAMIN [Concomitant]
     Indication: VITAMIN SUPPLEMENTATION
     Route: 048

REACTIONS (3)
  - AMYLOIDOSIS [None]
  - ORGANISING PNEUMONIA [None]
  - RHEUMATOID ARTHRITIS [None]
